FAERS Safety Report 17967048 (Version 1)
Quarter: 2020Q2

REPORT INFORMATION
  Report Type: Spontaneous
  Country: US (occurrence: US)
  Receive Date: 20200630
  Receipt Date: 20200630
  Transmission Date: 20200714
  Serious: Yes (Hospitalization)
  Sender: FDA-Public Use
  Company Number: None

PATIENT
  Age: 80 Year
  Sex: Male

DRUGS (1)
  1. MELPHALAN 2 MG TABLET [Suspect]
     Active Substance: MELPHALAN
     Indication: PROSTATE CANCER
     Dosage: ?          OTHER FREQUENCY:DAYS1,2,3+4;?
     Route: 058
     Dates: start: 20200529

REACTIONS (3)
  - Dehydration [None]
  - Head injury [None]
  - Loss of consciousness [None]

NARRATIVE: CASE EVENT DATE: 202006
